FAERS Safety Report 8380000-X (Version None)
Quarter: 2012Q1

REPORT INFORMATION
  Report Type: 
  Country: None (occurrence: None)
  Receive Date: 20120323
  Receipt Date: 20110531
  Transmission Date: 20120608
  Serious: Yes (Other)
  Sender: FDA-Public Use
  Company Number: 163-21880-11040454

PATIENT
  Age: 52 Year
  Sex: Male

DRUGS (5)
  1. COUMADIN [Concomitant]
  2. DEXAMETHASONE [Concomitant]
  3. REVLIMID [Suspect]
     Indication: MULTIPLE MYELOMA
     Dosage: 25 MG, 1 IN 1 D, PO ; 5 MG, 1 IN 1 D, PO ; 10 MG, DAYS 1 THROUGH 21 EVERY 28 DAYS, PO
     Route: 048
     Dates: start: 20080321, end: 20100101
  4. REVLIMID [Suspect]
     Indication: MULTIPLE MYELOMA
     Dosage: 25 MG, 1 IN 1 D, PO ; 5 MG, 1 IN 1 D, PO ; 10 MG, DAYS 1 THROUGH 21 EVERY 28 DAYS, PO
     Route: 048
     Dates: start: 20100401
  5. REVLIMID [Suspect]
     Indication: MULTIPLE MYELOMA
     Dosage: 25 MG, 1 IN 1 D, PO ; 5 MG, 1 IN 1 D, PO ; 10 MG, DAYS 1 THROUGH 21 EVERY 28 DAYS, PO
     Route: 048
     Dates: start: 20061201, end: 20070101

REACTIONS (1)
  - STAPHYLOCOCCAL INFECTION [None]
